FAERS Safety Report 8788718 (Version 2)
Quarter: 2013Q1

REPORT INFORMATION
  Report Type: Spontaneous
  Country: BR (occurrence: BR)
  Receive Date: 20120917
  Receipt Date: 20130326
  Transmission Date: 20140127
  Serious: Yes (Other)
  Sender: FDA-Public Use
  Company Number: BR-AMGEN-BRASP2012058199

PATIENT
  Age: 65 Year
  Sex: Female
  Weight: 70 kg

DRUGS (4)
  1. ENBREL [Suspect]
     Indication: RHEUMATOID ARTHRITIS
     Dosage: 50 MG, ONCE WEEKLY
     Route: 058
     Dates: start: 200905
  2. ENBREL [Suspect]
     Dosage: 50 MG, ONCE WEEKLY
     Route: 058
     Dates: start: 201201, end: 2012
  3. ARAVA [Concomitant]
     Dosage: UNK
  4. NEBILET [Concomitant]
     Dosage: UNK

REACTIONS (11)
  - Pulmonary mass [Unknown]
  - Dyspnoea [Unknown]
  - Wrong technique in drug usage process [Unknown]
  - Finger deformity [Unknown]
  - Hair colour changes [Not Recovered/Not Resolved]
  - Hair texture abnormal [Not Recovered/Not Resolved]
  - Therapeutic response decreased [Unknown]
  - Pleural effusion [Unknown]
  - Application site pain [Unknown]
  - Chest pain [Unknown]
  - Injection site pain [Recovered/Resolved]
